FAERS Safety Report 9014704 (Version 1)
Quarter: 2013Q1

REPORT INFORMATION
  Report Type: Spontaneous
  Country: CA (occurrence: CA)
  Receive Date: 20130115
  Receipt Date: 20130115
  Transmission Date: 20140127
  Serious: Yes (Other)
  Sender: FDA-Public Use
  Company Number: CA-TEVA-371219USA

PATIENT
  Sex: 0

DRUGS (1)
  1. BENDAMUSTINE [Suspect]
     Dosage: RECEIVED 6 CYCLES TOTAL DURING BEND-ACT
     Route: 042
     Dates: end: 201209

REACTIONS (1)
  - Neoplasm malignant [Recovered/Resolved]
